FAERS Safety Report 8100245-3 (Version None)
Quarter: 2012Q1

REPORT INFORMATION
  Report Type: 
  Country: None (occurrence: None)
  Receive Date: 20120131
  Receipt Date: 20120124
  Transmission Date: 20120608
  Serious: Yes (Hospitalization)
  Sender: FDA-Public Use
  Company Number: BE-B.I. PHARMACEUTICALS,INC./RIDGEFIELD-2012-BL-00059BL

PATIENT
  Sex: Male

DRUGS (5)
  1. RAMIPRIL [Concomitant]
     Dosage: 5 MG
     Route: 048
  2. LASIX [Concomitant]
     Dosage: 40 MG
     Route: 048
  3. PRADAXA [Suspect]
     Dosage: 220 MG
     Route: 048
  4. EMCONCOR MITIS [Concomitant]
     Dosage: 10 MG
     Route: 048
  5. CRESTOR [Concomitant]
     Dosage: 10 MG
     Route: 048

REACTIONS (2)
  - HIP FRACTURE [None]
  - HAEMORRHAGE [None]
